FAERS Safety Report 8120804-1 (Version None)
Quarter: 2012Q1

REPORT INFORMATION
  Report Type: 
  Country: None (occurrence: None)
  Receive Date: 20120207
  Receipt Date: 20120130
  Transmission Date: 20120608
  Serious: Yes (Death, Other)
  Sender: FDA-Public Use
  Company Number: US-BAYER-2012-009274

PATIENT
  Age: 49 Year
  Sex: Female
  Weight: 138.5 kg

DRUGS (30)
  1. VERSED [Concomitant]
     Dosage: UNK
     Dates: start: 20060523
  2. VECURONIUM BROMIDE [Concomitant]
     Dosage: UNK
     Dates: start: 20060523
  3. PROTAMINE SULFATE [Concomitant]
     Dosage: UNK
     Dates: start: 20060523
  4. PLASMA [Concomitant]
     Dosage: 8 U, UNK
     Route: 042
     Dates: start: 20060523
  5. PLATELETS [Concomitant]
     Dosage: 6 PACKS X 5
     Route: 042
     Dates: start: 20060523
  6. MORPHINE [Concomitant]
     Route: 042
  7. PHENERGAN [Concomitant]
     Route: 042
  8. PRINIVIL [Concomitant]
  9. VANCOMYCIN [Concomitant]
     Dosage: 1 G, UNK
     Route: 042
     Dates: start: 20060516
  10. HEPARIN [Concomitant]
     Dosage: 5000 U, QID
     Route: 058
     Dates: start: 20060516, end: 20060520
  11. HEPARIN [Concomitant]
     Dosage: UNK
     Dates: start: 20060523
  12. ZYVOX [Concomitant]
  13. PLAVIX [Concomitant]
  14. LOPRESSOR [Concomitant]
  15. AMIODARONE [Concomitant]
  16. PRAVACHOL [Concomitant]
  17. TRASYLOL [Suspect]
     Indication: AORTIC VALVE REPAIR
  18. LASIX [Concomitant]
     Dosage: 40 MG, UNK
     Route: 048
  19. THROMBIN LOCAL SOLUTION [Concomitant]
     Dosage: 5000 U, QID
     Dates: start: 20060523
  20. RED BLOOD CELLS [Concomitant]
     Dosage: 7 U, UNK
     Route: 042
     Dates: start: 20060523
  21. TRASYLOL [Suspect]
     Indication: CORONARY ARTERY BYPASS
     Dosage: UNK
     Route: 042
     Dates: start: 20060523
  22. NITROSTAT [Concomitant]
  23. NEXIUM [Concomitant]
  24. VANCOMYCIN [Concomitant]
     Dosage: UNK
     Dates: start: 20060523
  25. ZOSYN [Concomitant]
     Dosage: 225 MG, QID
     Route: 042
     Dates: start: 20060516, end: 20060519
  26. CRYOPRECIPITATES [Concomitant]
     Dosage: 10 ML, UNK
     Route: 042
     Dates: start: 20060523
  27. TRASYLOL [Suspect]
     Indication: CORONARY OSTIAL STENOSIS
  28. ACETYLSALICYLIC ACID SRT [Concomitant]
     Dosage: 325 MG, UNK
     Route: 048
  29. PROTONIX [Concomitant]
  30. MILRINONE [Concomitant]
     Dosage: UNK
     Dates: start: 20060523

REACTIONS (2)
  - RENAL FAILURE [None]
  - CARDIO-RESPIRATORY ARREST [None]
